FAERS Safety Report 7159185-9 (Version None)
Quarter: 2010Q4

REPORT INFORMATION
  Report Type: 
  Country: None (occurrence: None)
  Receive Date: 20101214
  Receipt Date: 20101210
  Transmission Date: 20110411
  Serious: Yes (Other)
  Sender: FDA-Public Use
  Company Number: US-PFIZER INC-2010132738

PATIENT
  Sex: Male
  Weight: 74.83 kg

DRUGS (6)
  1. CHANTIX [Suspect]
     Indication: SMOKING CESSATION THERAPY
     Dosage: UNK, 2X/DAY
     Dates: start: 20100728
  2. CHANTIX [Suspect]
     Dosage: UNK
     Route: 048
     Dates: start: 20100728, end: 20100901
  3. TRAMADOL [Concomitant]
     Indication: ARTHRALGIA
     Dosage: UNK
     Route: 048
  4. MELOXICAM [Concomitant]
     Indication: ARTHRALGIA
     Dosage: 50 MG, 1X/DAY
     Route: 048
  5. PRAVASTATIN SODIUM [Concomitant]
     Indication: BLOOD CHOLESTEROL INCREASED
     Dosage: 40 MG, 1X/DAY
     Route: 048
  6. LISINOPRIL [Concomitant]
     Indication: RENAL DISORDER
     Dosage: 5 MG, 1X/DAY
     Route: 048

REACTIONS (2)
  - DEAFNESS [None]
  - MEMORY IMPAIRMENT [None]
